FAERS Safety Report 8672351 (Version 3)
Quarter: 2012Q4

REPORT INFORMATION
  Report Type: Report from Study
  Country: JP (occurrence: JP)
  Receive Date: 20120719
  Receipt Date: 20121016
  Transmission Date: 20130627
  Serious: Yes (Death)
  Sender: FDA-Public Use
  Company Number: JP-SANOFI-AVENTIS-2012SA050571

PATIENT
  Age: 63 Year
  Sex: Male
  Weight: 75 kg

DRUGS (14)
  1. PLAVIX [Suspect]
     Indication: ACUTE MYOCARDIAL INFARCTION
     Route: 048
     Dates: start: 20120221, end: 20120228
  2. PLAVIX [Suspect]
     Indication: ACUTE MYOCARDIAL INFARCTION
     Route: 048
     Dates: start: 20120220, end: 20120220
  3. ASPIRIN [Concomitant]
     Indication: ACUTE MYOCARDIAL INFARCTION
     Route: 048
     Dates: end: 20120228
  4. HEPARIN [Concomitant]
     Indication: PERCUTANEOUS CORONARY INTERVENTION
     Dosage: Dose:5000 unit(s)
     Route: 048
     Dates: start: 20120220, end: 20120220
  5. ITAVASTATIN [Concomitant]
     Indication: PROPHYLAXIS
     Route: 048
     Dates: start: 20120221, end: 20120228
  6. PARIET [Concomitant]
     Indication: GASTRITIS PROPHYLAXIS
     Route: 048
     Dates: start: 20120221, end: 20120228
  7. DIPHENHYDRAMINE [Concomitant]
     Indication: RASH
     Route: 061
     Dates: start: 20120227, end: 20120228
  8. LIDOCAINE [Concomitant]
     Indication: EXTRASYSTOLES
     Route: 065
     Dates: start: 20120220, end: 20120220
  9. NITOROL [Concomitant]
     Indication: ACUTE MYOCARDIAL INFARCTION
     Route: 065
     Dates: start: 20120221, end: 20120221
  10. NITOROL [Concomitant]
     Indication: ACUTE MYOCARDIAL INFARCTION
     Route: 065
     Dates: start: 20120221, end: 20120221
  11. NITOROL [Concomitant]
     Indication: ACUTE MYOCARDIAL INFARCTION
     Route: 065
     Dates: start: 20120221, end: 20120221
  12. NITOROL [Concomitant]
     Indication: ACUTE MYOCARDIAL INFARCTION
     Route: 065
     Dates: start: 20120221, end: 20120221
  13. NITOROL [Concomitant]
     Indication: ACUTE MYOCARDIAL INFARCTION
     Route: 065
     Dates: start: 20120221, end: 20120221
  14. CEFAZOLIN SODIUM [Concomitant]
     Indication: INFECTION PROPHYLAXIS
     Route: 065
     Dates: start: 20120220, end: 20120222

REACTIONS (1)
  - Myocardial rupture [Fatal]
